FAERS Safety Report 6503600-8 (Version None)
Quarter: 2009Q4

REPORT INFORMATION
  Report Type: 
  Country: None (occurrence: None)
  Receive Date: 20091217
  Receipt Date: 20091119
  Transmission Date: 20100525
  Serious: No
  Sender: FDA-Public Use
  Company Number: US-BAYER-200916934BCC

PATIENT
  Age: 53 Year
  Sex: Male
  Weight: 93 kg

DRUGS (5)
  1. ALKA-SELTZER PLUS NIGHT FORMULA [Suspect]
     Indication: NASOPHARYNGITIS
     Route: 048
     Dates: start: 20091102, end: 20091102
  2. ALKA-SELTZER PLUS NIGHT FORMULA [Suspect]
     Route: 048
     Dates: start: 20091113, end: 20091113
  3. ALKA-SELTZER PLUS DAY FORMULA [Suspect]
     Indication: NASOPHARYNGITIS
     Route: 048
     Dates: start: 20091105, end: 20091106
  4. ALKA-SELTZER PLUS DAY FORMULA [Suspect]
     Route: 048
     Dates: start: 20091112, end: 20091112
  5. ALEVE (CAPLET) [Suspect]
     Indication: HEADACHE
     Route: 065
     Dates: start: 20091107

REACTIONS (1)
  - HEADACHE [None]
